FAERS Safety Report 13975309 (Version 3)
Quarter: 2019Q1

REPORT INFORMATION
  Report Type: Report from Study
  Country: US (occurrence: US)
  Receive Date: 20170915
  Receipt Date: 20190113
  Transmission Date: 20190417
  Serious: Yes (Hospitalization, Other)
  Sender: FDA-Public Use
  Company Number: US-BRISTOL-MYERS SQUIBB COMPANY-BMS-2017-081462

PATIENT
  Age: 45 Year
  Sex: Female
  Weight: 109.7 kg

DRUGS (2)
  1. RELATLIMAB [Suspect]
     Active Substance: RELATLIMAB
     Indication: GLIOBLASTOMA MULTIFORME
     Dosage: 80 MG, UNK
     Route: 065
     Dates: start: 20170810
  2. NIVOLUMAB [Suspect]
     Active Substance: NIVOLUMAB
     Indication: GLIOBLASTOMA MULTIFORME
     Dosage: 240 MG, UNK
     Route: 065
     Dates: start: 20170810

REACTIONS (1)
  - Vasogenic cerebral oedema [Recovering/Resolving]

NARRATIVE: CASE EVENT DATE: 20170908
